FAERS Safety Report 10070423 (Version 1)
Quarter: 2014Q2

REPORT INFORMATION
  Report Type: Spontaneous
  Country: DE (occurrence: None)
  Receive Date: 20140408
  Receipt Date: 20140408
  Transmission Date: 20141212
  Serious: Yes (Hospitalization, Other)
  Sender: FDA-Public Use
  Company Number: 2014P1002739

PATIENT
  Sex: Male

DRUGS (3)
  1. EPINEPHRINE [Suspect]
     Indication: NERVE BLOCK
     Route: 058
  2. XYLOCAIN [Suspect]
     Indication: NERVE BLOCK
     Route: 058
  3. NAROPIN [Suspect]
     Indication: NERVE BLOCK
     Route: 058

REACTIONS (5)
  - Post procedural haemorrhage [None]
  - Surgical procedure repeated [None]
  - Wound infection [None]
  - Erectile dysfunction [None]
  - Postoperative wound complication [None]
